FAERS Safety Report 7177322-7 (Version None)
Quarter: 2010Q4

REPORT INFORMATION
  Report Type: 
  Country: None (occurrence: None)
  Receive Date: 20101220
  Receipt Date: 20101214
  Transmission Date: 20110411
  Serious: Yes (Other)
  Sender: FDA-Public Use
  Company Number: JP-PFIZER INC-JP-WYE-H17874510

PATIENT
  Age: 79 Year
  Sex: Male
  Weight: 71 kg

DRUGS (1)
  1. ZOSYN [Suspect]
     Indication: PYELONEPHRITIS ACUTE
     Dosage: 4.5 G, 1X/DAY
     Route: 041
     Dates: start: 20100924, end: 20100924

REACTIONS (4)
  - ANAPHYLACTOID REACTION [None]
  - DYSPHONIA [None]
  - FLUSHING [None]
  - HYPERSENSITIVITY [None]
